FAERS Safety Report 5862287-8 (Version None)
Quarter: 2008Q3

REPORT INFORMATION
  Report Type: 
  Country: None (occurrence: None)
  Receive Date: 20080828
  Receipt Date: 20080821
  Transmission Date: 20090109
  Serious: Yes (Death, Other)
  Sender: FDA-Public Use
  Company Number: DE-JNJFOC-20080804935

PATIENT
  Age: 86 Year
  Sex: Male

DRUGS (1)
  1. REMICADE [Suspect]
     Indication: OFF LABEL USE
     Route: 042

REACTIONS (1)
  - ASTHMA [None]
